FAERS Safety Report 9546779 (Version 1)
Quarter: 2013Q3

REPORT INFORMATION
  Report Type: Spontaneous
  Country: US (occurrence: US)
  Receive Date: 20130924
  Receipt Date: 20130924
  Transmission Date: 20140515
  Serious: Yes (Congenital Anomaly)
  Sender: FDA-Public Use
  Company Number: US-JNJFOC-20130908077

PATIENT
  Sex: 0

DRUGS (1)
  1. PHENYLEPHRINE [Suspect]
     Indication: NASAL DECONGESTION THERAPY
     Route: 064

REACTIONS (2)
  - Atrioventricular septal defect [Unknown]
  - Foetal exposure during pregnancy [Unknown]
